FAERS Safety Report 12676213 (Version 4)
Quarter: 2016Q4

REPORT INFORMATION
  Report Type: Report from Study
  Country: US (occurrence: US)
  Receive Date: 20160823
  Receipt Date: 20161208
  Transmission Date: 20170207
  Serious: Yes (Hospitalization, Other)
  Sender: FDA-Public Use
  Company Number: US-GILEAD-2016-0215525

PATIENT
  Age: 33 Year
  Sex: Female
  Weight: 50 kg

DRUGS (9)
  1. PROZAC [Concomitant]
     Active Substance: FLUOXETINE HYDROCHLORIDE
  2. VELETRI [Concomitant]
     Active Substance: EPOPROSTENOL
     Indication: PULMONARY HYPERTENSION
     Dosage: UNK
     Route: 042
  3. VELETRI [Concomitant]
     Active Substance: EPOPROSTENOL
     Dosage: 29 NG, UNK
     Route: 042
  4. FOCALIN [Concomitant]
     Active Substance: DEXMETHYLPHENIDATE HYDROCHLORIDE
     Dosage: UNK
  5. AMBRISENTAN [Suspect]
     Active Substance: AMBRISENTAN
     Indication: PULMONARY ARTERIAL HYPERTENSION
     Dosage: 10 MG, QD
     Route: 065
     Dates: start: 20160308
  6. COUMADIN [Concomitant]
     Active Substance: WARFARIN SODIUM
  7. REVATIO [Concomitant]
     Active Substance: SILDENAFIL CITRATE
  8. SILDENAFIL. [Concomitant]
     Active Substance: SILDENAFIL
  9. LYRICA [Concomitant]
     Active Substance: PREGABALIN

REACTIONS (9)
  - Central venous catheterisation [Unknown]
  - Catheter site haemorrhage [Not Recovered/Not Resolved]
  - Device related infection [Recovered/Resolved]
  - Infusion site pain [Unknown]
  - Application site pruritus [Not Recovered/Not Resolved]
  - Catheter site pruritus [Not Recovered/Not Resolved]
  - Catheter site erythema [Not Recovered/Not Resolved]
  - Device breakage [Unknown]
  - Fatigue [Unknown]

NARRATIVE: CASE EVENT DATE: 20161004
